FAERS Safety Report 18202600 (Version 1)
Quarter: 2020Q3

REPORT INFORMATION
  Report Type: Spontaneous
  Country: US (occurrence: US)
  Receive Date: 20200827
  Receipt Date: 20200827
  Transmission Date: 20201103
  Serious: Yes (Death)
  Sender: FDA-Public Use
  Company Number: None

PATIENT
  Age: 71 Year
  Sex: Male
  Weight: 107 kg

DRUGS (1)
  1. REMDESIVIR. [Suspect]
     Active Substance: REMDESIVIR
     Indication: COVID-19
     Route: 042
     Dates: start: 20200713, end: 20200815

REACTIONS (4)
  - General physical health deterioration [None]
  - Pneumonia [None]
  - Influenza [None]
  - Respiratory failure [None]

NARRATIVE: CASE EVENT DATE: 20200811
